FAERS Safety Report 4639530-6 (Version None)
Quarter: 2005Q2

REPORT INFORMATION
  Report Type: 
  Country: None (occurrence: None)
  Receive Date: 20050419
  Receipt Date: 20050411
  Transmission Date: 20051028
  Serious: No
  Sender: FDA-Public Use
  Company Number: 2005UW04350

PATIENT
  Age: 56 Year
  Sex: Female
  Weight: 54.4316 kg

DRUGS (1)
  1. TOPROL-XL [Suspect]
     Dosage: 25 MG PO
     Route: 048

REACTIONS (1)
  - ANAPHYLACTIC REACTION [None]
